FAERS Safety Report 20827458 (Version 1)
Quarter: 2022Q2

REPORT INFORMATION
  Report Type: Spontaneous
  Country: CO (occurrence: CO)
  Receive Date: 20220513
  Receipt Date: 20220513
  Transmission Date: 20220720
  Serious: Yes (Hospitalization)
  Sender: FDA-Public Use
  Company Number: CO-LUPIN PHARMACEUTICALS INC.-2022-06930

PATIENT
  Age: 8 Year
  Sex: Male

DRUGS (7)
  1. POLYETHYLENE GLYCOL [Suspect]
     Active Substance: POLYETHYLENE GLYCOL
     Indication: Constipation
     Dosage: 1 GRAM PER KILOGRAM PER DAY, QD
     Route: 065
  2. METOCLOPRAMIDE [Suspect]
     Active Substance: METOCLOPRAMIDE
     Indication: Impaired gastric emptying
     Dosage: 0.6 MILLIGRAM PER KILOGRAM PER DAY, TID
     Route: 065
  3. ERYTHROMYCIN [Suspect]
     Active Substance: ERYTHROMYCIN
     Indication: Impaired gastric emptying
     Dosage: 15 MILLIGRAM PER KILOGRAM PER DAY, TID
     Route: 065
  4. DOMPERIDONE [Suspect]
     Active Substance: DOMPERIDONE
     Indication: Impaired gastric emptying
     Dosage: 0.9 MILLIGRAM PER KILOGRAM PER DAY, TID
     Route: 065
  5. PRUCALOPRIDE [Concomitant]
     Active Substance: PRUCALOPRIDE
     Indication: Impaired gastric emptying
     Dosage: 0.04 MILLIGRAM/KILOGRAM, QD
     Route: 065
  6. ESOMEPRAZOLE [Concomitant]
     Active Substance: ESOMEPRAZOLE
     Indication: Gastritis
     Dosage: 1 MILLIGRAM PER KILOGRAM PER DAY
     Route: 065
  7. SODIUM PICOSULFATE [Concomitant]
     Active Substance: SODIUM PICOSULFATE
     Indication: Laxative supportive care
     Dosage: 6 MG, QD
     Route: 065

REACTIONS (1)
  - Drug ineffective [Unknown]
